FAERS Safety Report 6470599-2 (Version None)
Quarter: 2009Q4

REPORT INFORMATION
  Report Type: 
  Country: None (occurrence: None)
  Receive Date: 20091203
  Receipt Date: 20090904
  Transmission Date: 20100525
  Serious: No
  Sender: FDA-Public Use
  Company Number: US-ABBOTT-09P-163-0596278-00

PATIENT
  Sex: Female
  Weight: 63.56 kg

DRUGS (5)
  1. MERIDIA [Suspect]
     Indication: WEIGHT CONTROL
     Route: 048
     Dates: start: 20090806, end: 20090912
  2. MERIDIA [Suspect]
     Route: 048
     Dates: start: 20090601, end: 20090806
  3. BIRTH CONTROL PILLS [Concomitant]
     Indication: ORAL CONTRACEPTION
     Route: 048
  4. IBUPROFEN [Concomitant]
     Indication: PAIN
     Route: 048
  5. IBUPROFEN [Concomitant]

REACTIONS (13)
  - ASTHENIA [None]
  - BLOOD PRESSURE INCREASED [None]
  - BODY TEMPERATURE INCREASED [None]
  - CHEST DISCOMFORT [None]
  - DEHYDRATION [None]
  - DYSPNOEA [None]
  - FEELING COLD [None]
  - HEADACHE [None]
  - HEART RATE INCREASED [None]
  - PAIN [None]
  - PALLOR [None]
  - PALPITATIONS [None]
  - TENSION HEADACHE [None]
